FAERS Safety Report 7324065-2 (Version None)
Quarter: 2011Q1

REPORT INFORMATION
  Report Type: 
  Country: None (occurrence: None)
  Receive Date: 20110301
  Receipt Date: 20110224
  Transmission Date: 20110831
  Serious: Yes (Death, Other)
  Sender: FDA-Public Use
  Company Number: US-PFIZER INC-2011041365

PATIENT
  Age: 64 Year
  Sex: Female

DRUGS (2)
  1. CELEBREX [Suspect]
     Indication: MUSCULOSKELETAL PAIN
     Dosage: UNK
     Route: 048
  2. CELEBREX [Suspect]
     Indication: PAIN IN EXTREMITY

REACTIONS (3)
  - TOXIC EPIDERMAL NECROLYSIS [None]
  - STEVENS-JOHNSON SYNDROME [None]
  - RESPIRATORY DISORDER [None]
